FAERS Safety Report 9107009 (Version 2)
Quarter: 2013Q2

REPORT INFORMATION
  Report Type: Spontaneous
  Country: FI (occurrence: FI)
  Receive Date: 20130221
  Receipt Date: 20130409
  Transmission Date: 20140414
  Serious: Yes (Other)
  Sender: FDA-Public Use
  Company Number: FI-ELI_LILLY_AND_COMPANY-FI201302003093

PATIENT
  Age: 47 Year
  Sex: Female

DRUGS (5)
  1. FORSTEO [Suspect]
     Indication: OSTEOPOROSIS
     Dosage: 20MCG, ONCE DAILY
     Route: 058
     Dates: start: 20110328
  2. FOSAMAX [Concomitant]
     Indication: OSTEOPOROSIS
  3. CORTISONE [Concomitant]
     Indication: SYSTEMIC LUPUS ERYTHEMATOSUS
  4. THYROXIN [Concomitant]
     Indication: HYPOTHYROIDISM
  5. IDEOS [Concomitant]
     Indication: MEDICAL DIET

REACTIONS (4)
  - Road traffic accident [Recovered/Resolved]
  - Concussion [Recovered/Resolved]
  - Contusion [Recovered/Resolved]
  - Contusion [Recovered/Resolved]
